FAERS Safety Report 13907181 (Version 1)
Quarter: 2017Q3

REPORT INFORMATION
  Report Type: Other
  Country: GB (occurrence: CZ)
  Receive Date: 20170825
  Receipt Date: 20170825
  Transmission Date: 20171127
  Serious: Yes (Death, Other)
  Sender: FDA-Public Use
  Company Number: CZ-CLARIS PHARMASERVICES-2025109

PATIENT
  Age: 14 Year
  Sex: Female

DRUGS (2)
  1. METOPROLOL. [Suspect]
     Active Substance: METOPROLOL
     Indication: SUICIDAL IDEATION
     Route: 048
  2. PROPAFENONE. [Suspect]
     Active Substance: PROPAFENONE
     Route: 048

REACTIONS (11)
  - Seizure [Fatal]
  - Loss of consciousness [None]
  - Overdose [Fatal]
  - Drug interaction [None]
  - Electrocardiogram QRS complex prolonged [None]
  - Toxicity to various agents [None]
  - Cerebral haemorrhage [Fatal]
  - Suicide attempt [Fatal]
  - Cardiac arrest [None]
  - Acute kidney injury [None]
  - Cardiogenic shock [Fatal]
